FAERS Safety Report 7540808-7 (Version None)
Quarter: 2011Q2

REPORT INFORMATION
  Report Type: 
  Country: None (occurrence: None)
  Receive Date: 20110610
  Receipt Date: 20110607
  Transmission Date: 20111010
  Serious: Yes (Hospitalization)
  Sender: FDA-Public Use
  Company Number: US-PFIZER INC-2011063817

PATIENT
  Sex: Female

DRUGS (2)
  1. ADVIL CONGESTION RELIEF [Suspect]
     Dosage: UNK
  2. ADVIL CONGESTION RELIEF [Suspect]
     Dosage: UNK

REACTIONS (5)
  - HEART RATE DECREASED [None]
  - MUSCLE SPASMS [None]
  - FEELING HOT [None]
  - HEART RATE INCREASED [None]
  - INSOMNIA [None]
